FAERS Safety Report 6216600-2 (Version None)
Quarter: 2009Q2

REPORT INFORMATION
  Report Type: 
  Country: None (occurrence: None)
  Receive Date: 20090605
  Receipt Date: 20090525
  Transmission Date: 20091009
  Serious: Yes (Other)
  Sender: FDA-Public Use
  Company Number: PHHY2009US20516

PATIENT
  Age: 35 Year
  Sex: Male

DRUGS (5)
  1. PROLEUKIN [Suspect]
     Indication: METASTATIC MALIGNANT MELANOMA
     Dosage: UNK
     Dates: start: 20050101
  2. PROLEUKIN [Suspect]
     Dosage: 720000 IU/KG, Q8H
  3. CYCLOPHOSPHAMIDE [Concomitant]
     Dosage: 60 MG/KG FOR 2 DAYS
  4. FLUDARABINE PHOSPHATE [Concomitant]
     Dosage: 25 MG/M2
  5. RADIOTHERAPY [Concomitant]
     Dosage: 2 GY TWICE DAILY

REACTIONS (21)
  - ACHROMOTRICHIA ACQUIRED [None]
  - ALOPECIA [None]
  - ANTERIOR CHAMBER CELL [None]
  - BLOOD CREATININE INCREASED [None]
  - CATARACT OPERATION [None]
  - DEAFNESS [None]
  - EYE PAIN [None]
  - INSOMNIA [None]
  - INTRAOCULAR LENS IMPLANT [None]
  - IRIDOCYCLITIS [None]
  - IRIS HYPOPIGMENTATION [None]
  - IRIS OPERATION [None]
  - MACULAR OEDEMA [None]
  - MALIGNANT NEOPLASM PROGRESSION [None]
  - MENTAL STATUS CHANGES [None]
  - PHOTOPHOBIA [None]
  - PYREXIA [None]
  - RASH ERYTHEMATOUS [None]
  - SKIN DEPIGMENTATION [None]
  - VISUAL ACUITY REDUCED [None]
  - VITILIGO [None]
